FAERS Safety Report 6891599-4 (Version None)
Quarter: 2010Q3

REPORT INFORMATION
  Report Type: 
  Country: None (occurrence: None)
  Receive Date: 20100731
  Receipt Date: 20070827
  Transmission Date: 20110219
  Serious: No
  Sender: FDA-Public Use
  Company Number: US-PFIZER INC-2007008220

PATIENT
  Sex: Male
  Weight: 65.77 kg

DRUGS (2)
  1. NEURONTIN [Suspect]
     Indication: HEMIPARESIS
     Dates: start: 19851101
  2. AMITRIPTYLINE HYDROCHLORIDE [Concomitant]
     Dates: start: 20061201

REACTIONS (3)
  - BLOOD GLUCOSE ABNORMAL [None]
  - GINGIVITIS [None]
  - TOOTH DISORDER [None]
